FAERS Safety Report 17604819 (Version 1)
Quarter: 2020Q1

REPORT INFORMATION
  Report Type: Spontaneous
  Country: US (occurrence: US)
  Receive Date: 20200331
  Receipt Date: 20200331
  Transmission Date: 20200409
  Serious: No
  Sender: FDA-Public Use
  Company Number: US-TEVA-2020-US-1216726

PATIENT
  Sex: Female

DRUGS (1)
  1. AJOVY [Suspect]
     Active Substance: FREMANEZUMAB-VFRM
     Route: 065
     Dates: end: 201912

REACTIONS (3)
  - Speech disorder [Recovered/Resolved]
  - Aphasia [Recovered/Resolved]
  - Anosmia [Not Recovered/Not Resolved]
